FAERS Safety Report 7683711-4 (Version None)
Quarter: 2011Q3

REPORT INFORMATION
  Report Type: 
  Country: None (occurrence: None)
  Receive Date: 20110815
  Receipt Date: 20110802
  Transmission Date: 20111222
  Serious: Yes (Hospitalization)
  Sender: FDA-Public Use
  Company Number: TW-CELGENEUS-153-50794-11080500

PATIENT
  Sex: Male
  Weight: 32.9 kg

DRUGS (2)
  1. VIDAZA [Suspect]
     Dosage: 81 MILLIGRAM
     Route: 050
     Dates: start: 20110704, end: 20110712
  2. VIDAZA [Suspect]

REACTIONS (1)
  - RESPIRATORY FAILURE [None]
